FAERS Safety Report 4324225-9 (Version None)
Quarter: 2004Q1

REPORT INFORMATION
  Report Type: 
  Country: None (occurrence: None)
  Receive Date: 20040326
  Receipt Date: 20040108
  Transmission Date: 20041129
  Serious: No
  Sender: FDA-Public Use
  Company Number: US-GLAXOSMITHKLINE-A0492400A

PATIENT
  Age: 81 Year
  Sex: Female

DRUGS (3)
  1. ADVAIR DISKUS 100/50 [Suspect]
     Indication: LUNG DISORDER
     Dosage: 1PUFF TWICE PER DAY
     Route: 055
  2. ANTIBIOTIC [Suspect]
     Indication: INFLUENZA
     Route: 065
  3. ALBUTEROL [Concomitant]
     Route: 055

REACTIONS (5)
  - ARTHRALGIA [None]
  - DIZZINESS [None]
  - MUSCULOSKELETAL STIFFNESS [None]
  - MYALGIA [None]
  - TREMOR [None]
